FAERS Safety Report 14896296 (Version 4)
Quarter: 2018Q3

REPORT INFORMATION
  Report Type: Spontaneous
  Country: PL (occurrence: PL)
  Receive Date: 20180515
  Receipt Date: 20180824
  Transmission Date: 20181010
  Serious: Yes (Hospitalization, Other)
  Sender: FDA-Public Use
  Company Number: PL-AUROBINDO-AUR-APL-2018-025653

PATIENT

DRUGS (7)
  1. DICLOFENAC [Interacting]
     Active Substance: DICLOFENAC
     Indication: INJURY
     Dosage: 50 MG, QD
  2. KETONAL                            /00321701/ [Suspect]
     Active Substance: KETOPROFEN
     Indication: BACK PAIN
     Dosage: 100 MILLIGRAM, TWO TIMES A DAY
     Route: 065
  3. PARACETAMOL [Suspect]
     Active Substance: ACETAMINOPHEN
     Indication: BACK PAIN
     Dosage: 500 MG, TID
     Route: 048
  4. DICLOFENAC [Interacting]
     Active Substance: DICLOFENAC
     Indication: BACK PAIN
     Dosage: 50 MILLIGRAM, TWO TIMES A DAY ((QD?BID))
     Route: 065
  5. PARACETAMOL [Interacting]
     Active Substance: ACETAMINOPHEN
     Indication: PAIN
     Dosage: 500 MG, TID
     Route: 048
  6. PARACETAMOL [Interacting]
     Active Substance: ACETAMINOPHEN
     Indication: INJURY
  7. DICLOFENAC [Interacting]
     Active Substance: DICLOFENAC
     Indication: PAIN
     Dosage: 50 MG, BID

REACTIONS (20)
  - Pyrexia [Recovering/Resolving]
  - Pallor [Recovering/Resolving]
  - Staphylococcal sepsis [Recovered/Resolved]
  - Inflammation [Recovering/Resolving]
  - Subcutaneous abscess [Recovering/Resolving]
  - Nausea [Recovering/Resolving]
  - Back pain [Recovering/Resolving]
  - Urinary hesitation [Recovering/Resolving]
  - Urinary retention [Recovering/Resolving]
  - Emotional distress [Recovering/Resolving]
  - Chromaturia [Recovering/Resolving]
  - Asthenia [Recovering/Resolving]
  - Respiratory rate increased [Recovering/Resolving]
  - Nerve compression [Recovering/Resolving]
  - Dehydration [Recovering/Resolving]
  - Skin turgor decreased [Recovering/Resolving]
  - Dry mouth [Recovering/Resolving]
  - Staphylococcal infection [Recovering/Resolving]
  - Acute kidney injury [Recovered/Resolved]
  - Abdominal tenderness [Recovering/Resolving]
